FAERS Safety Report 8084460-3 (Version None)
Quarter: 2012Q1

REPORT INFORMATION
  Report Type: 
  Country: None (occurrence: None)
  Receive Date: 20120128
  Receipt Date: 20110330
  Transmission Date: 20120608
  Serious: No
  Sender: FDA-Public Use
  Company Number: US-ABBOTT-11P-163-0713948-00

PATIENT
  Sex: Female
  Weight: 86.26 kg

DRUGS (9)
  1. METHOTREXATE [Concomitant]
     Indication: RHEUMATOID ARTHRITIS
     Dosage: 2.5 MG (10) TABS WEEKLY
  2. CYMBALTA [Concomitant]
     Indication: FIBROMYALGIA
     Dosage: AT BEDTIME
  3. HYDROXYZINE CHLOROQUINE [Concomitant]
     Indication: SYSTEMIC LUPUS ERYTHEMATOSUS
     Dosage: DAILY
  4. PREMARIN [Concomitant]
     Indication: HOT FLUSH
     Dosage: DAILY
  5. FOLIC ACID [Concomitant]
     Indication: VITAMIN SUPPLEMENTATION
     Dosage: DAILY
  6. LISINOPRIL [Concomitant]
     Indication: HYPERTENSION
     Dosage: DAILY
  7. FLEXERIL [Concomitant]
     Indication: PRODUCT USED FOR UNKNOWN INDICATION
  8. HUMIRA [Suspect]
     Indication: RHEUMATOID ARTHRITIS
     Route: 058
     Dates: start: 20110201, end: 20110320
  9. CYMBALTA [Concomitant]
     Indication: INSOMNIA

REACTIONS (7)
  - PAIN IN EXTREMITY [None]
  - WRONG TECHNIQUE IN DRUG USAGE PROCESS [None]
  - BODY TINEA [None]
  - DRUG DOSE OMISSION [None]
  - INJECTION SITE PAIN [None]
  - ARTHRALGIA [None]
  - DEVICE MALFUNCTION [None]
